FAERS Safety Report 6304298-4 (Version None)
Quarter: 2009Q3

REPORT INFORMATION
  Report Type: 
  Country: None (occurrence: None)
  Receive Date: 20090811
  Receipt Date: 20090730
  Transmission Date: 20100115
  Serious: Yes (Life-Threatening, Other)
  Sender: FDA-Public Use
  Company Number: JP-PFIZER INC-2009206821

PATIENT
  Age: 79 Year

DRUGS (30)
  1. ZYVOX [Suspect]
     Indication: INTERVERTEBRAL DISCITIS
     Dosage: 600 MG, 2X/DAY
     Route: 042
     Dates: start: 20090327, end: 20090403
  2. ZYVOX [Suspect]
     Indication: ABSCESS
  3. ZYVOX [Suspect]
     Indication: STAPHYLOCOCCAL SEPSIS
  4. ZYVOX [Suspect]
     Dosage: 600 MG, 2X/DAY
     Route: 048
     Dates: start: 20090404, end: 20090420
  5. ZYVOX [Suspect]
  6. ZYVOX [Suspect]
  7. PARIET [Suspect]
     Indication: PROPHYLAXIS
     Dosage: 10 MG, 1X/DAY
     Route: 048
     Dates: start: 20090328
  8. NEORAL [Concomitant]
     Indication: INTERSTITIAL LUNG DISEASE
     Dosage: 100 MG, UNK
     Route: 048
     Dates: start: 20090313
  9. NEORAL [Concomitant]
     Dosage: 150 MG, UNK
     Route: 048
     Dates: start: 20090319
  10. PREDONINE [Concomitant]
     Indication: INTERSTITIAL LUNG DISEASE
     Dosage: 60 MG, UNK
     Dates: start: 20090301
  11. PREDONINE [Concomitant]
     Dosage: 60 MG, UNK
     Dates: start: 20090309
  12. PREDONINE [Concomitant]
     Dosage: 50 MG, UNK
     Dates: start: 20090322
  13. PREDONINE [Concomitant]
     Dosage: 30 MG, UNK
     Dates: start: 20090405
  14. PREDONINE [Concomitant]
     Dosage: 25 MG, UNK
     Dates: start: 20090419
  15. PREDONINE [Concomitant]
     Dosage: 20 MG, UNK
     Dates: start: 20090510
  16. PREDONINE [Concomitant]
     Dosage: 15 MG, UNK
     Dates: start: 20090524
  17. PREDONINE [Concomitant]
     Dosage: 10 MG, UNK
     Dates: start: 20090605
  18. MEROPENEM TRIHYDRATE [Concomitant]
     Indication: PNEUMONIA
     Dosage: UNK
     Route: 041
     Dates: start: 20090226, end: 20090309
  19. ERYTHROCIN LACTOBIONATE [Concomitant]
     Indication: PNEUMONIA
     Dosage: UNK
     Route: 041
     Dates: start: 20090226, end: 20090309
  20. ELASPOL [Concomitant]
     Indication: ACUTE RESPIRATORY DISTRESS SYNDROME
     Dosage: UNK
     Route: 041
     Dates: start: 20090226, end: 20090311
  21. EPOGIN [Concomitant]
     Dosage: 6000 IU, UNK
     Dates: start: 20090505
  22. UNASYN [Concomitant]
     Indication: INTERVERTEBRAL DISCITIS
     Dosage: 3 G, 2X/DAY
     Route: 041
     Dates: start: 20090318, end: 20090323
  23. UNASYN [Concomitant]
     Indication: ABSCESS
  24. UNASYN [Concomitant]
     Indication: STAPHYLOCOCCAL SEPSIS
  25. VANCOMYCIN HYDROCHLORIDE [Concomitant]
     Indication: INTERVERTEBRAL DISCITIS
     Dosage: 0.5 G, UNK
     Route: 042
     Dates: start: 20090323, end: 20090615
  26. VANCOMYCIN HYDROCHLORIDE [Concomitant]
     Indication: ABSCESS
  27. VANCOMYCIN HYDROCHLORIDE [Concomitant]
     Indication: SEPSIS
  28. CIPROXAN [Concomitant]
     Indication: INTERVERTEBRAL DISCITIS
     Dosage: UNK
     Route: 041
     Dates: start: 20090425, end: 20090501
  29. CIPROXAN [Concomitant]
     Indication: ABSCESS
  30. CIPROXAN [Concomitant]
     Indication: STAPHYLOCOCCAL SEPSIS

REACTIONS (2)
  - PANCYTOPENIA [None]
  - RENAL IMPAIRMENT [None]
